FAERS Safety Report 19401488 (Version 1)
Quarter: 2021Q2

REPORT INFORMATION
  Report Type: Other
  Country: US (occurrence: US)
  Receive Date: 20210611
  Receipt Date: 20210611
  Transmission Date: 20210717
  Serious: Yes (Hospitalization)
  Sender: FDA-Public Use
  Company Number: US-AJANTA PHARMA USA INC.-2112598

PATIENT
  Age: 14 Year
  Sex: Female

DRUGS (1)
  1. RISPERIDONE. [Suspect]
     Active Substance: RISPERIDONE
     Route: 048

REACTIONS (5)
  - Tachycardia [Recovering/Resolving]
  - Hypotension [Recovering/Resolving]
  - Urinary retention [Recovering/Resolving]
  - Overdose [Recovered/Resolved]
  - Delirium [Recovering/Resolving]
